FAERS Safety Report 4383965-6 (Version None)
Quarter: 2004Q2

REPORT INFORMATION
  Report Type: 
  Country: None (occurrence: None)
  Receive Date: 20040621
  Receipt Date: 20040611
  Transmission Date: 20050107
  Serious: Yes (Other)
  Sender: FDA-Public Use
  Company Number: 2004039517

PATIENT
  Age: 67 Year
  Sex: Female

DRUGS (1)
  1. LIPITOR [Suspect]
     Indication: BLOOD CHOLESTEROL
     Dosage: 10 MG (10 MG, 1 IN 1 D)

REACTIONS (4)
  - BLINDNESS UNILATERAL [None]
  - HEADACHE [None]
  - MUSCLE CRAMP [None]
  - TRANSIENT ISCHAEMIC ATTACK [None]
